FAERS Safety Report 16125445 (Version 1)
Quarter: 2019Q1

REPORT INFORMATION
  Report Type: Spontaneous
  Country: DE (occurrence: DE)
  Receive Date: 20190327
  Receipt Date: 20190327
  Transmission Date: 20190418
  Serious: Yes (Death, Life-Threatening)
  Sender: FDA-Public Use
  Company Number: DE-009507513-1903DEU008669

PATIENT
  Age: 77 Year
  Sex: Male

DRUGS (51)
  1. SODIUM CHLORIDE. [Suspect]
     Active Substance: SODIUM CHLORIDE
     Dosage: 1000 MG/DAY
     Route: 042
     Dates: start: 20041109, end: 20041110
  2. ACETAMINOPHEN. [Suspect]
     Active Substance: ACETAMINOPHEN
     Indication: PAIN
     Dosage: DAILY DOSE: 3 DF DOSAGE FORM EVERY DAY
     Route: 054
     Dates: start: 20041023, end: 20041023
  3. EUNERPAN [Suspect]
     Active Substance: MELPERONE HYDROCHLORIDE
     Indication: DEPRESSION
     Dosage: 5 MILLILITER
     Route: 048
     Dates: start: 20041028, end: 20041116
  4. GENTAMICIN. [Suspect]
     Active Substance: GENTAMICIN
     Indication: SEPSIS
     Dosage: UNK, UNK
     Route: 042
     Dates: start: 20041112, end: 20041118
  5. HYDROCORTISONE ACETATE (+) NEOMYCIN SULFATE [Suspect]
     Active Substance: HYDROCORTISONE ACETATE\NEOMYCIN SULFATE
     Indication: RASH
     Dosage: DAILY DOSE: 1 DF DOSAGE FORM EVERY DAY
     Route: 061
     Dates: start: 20041117, end: 20041118
  6. PANTOZOL [Suspect]
     Active Substance: PANTOPRAZOLE SODIUM
     Dosage: DAILY DOSE: 40 MG MILLIGRAM(S) EVERY DAY
     Route: 048
     Dates: start: 20041021, end: 20041116
  7. TRAMAL [Suspect]
     Active Substance: TRAMADOL
     Dosage: DAILY DOSE: 20 GTT DROP(S) EVERY DAY
     Route: 048
     Dates: start: 20041024, end: 20041024
  8. ACETAMINOPHEN. [Suspect]
     Active Substance: ACETAMINOPHEN
     Dosage: DAILY DOSE: 1 DF DOSAGE FORM EVERY DAY
     Route: 054
     Dates: start: 20041115, end: 20041115
  9. LASIX [Suspect]
     Active Substance: FUROSEMIDE
     Indication: RENAL FAILURE
     Dosage: DAILY DOSE: 375 MG MILLIGRAM(S) EVERY DAY
     Route: 048
     Dates: start: 20041026, end: 20041115
  10. OXYGEN. [Suspect]
     Active Substance: OXYGEN
     Indication: DYSPNOEA
     Dosage: DAILY DOSE: 2 L LITRE(S) EVERY DAY
     Dates: start: 20041116, end: 20041118
  11. NUTRITIONAL SUPPLEMENTS [Suspect]
     Active Substance: DIETARY SUPPLEMENT
     Indication: SUPPLEMENTATION THERAPY
     Dosage: 750 ML
     Route: 042
     Dates: start: 20041116, end: 20041118
  12. PANTOZOL [Suspect]
     Active Substance: PANTOPRAZOLE SODIUM
     Indication: GASTRITIS PROPHYLAXIS
     Dosage: 40 MG/DAY
     Route: 048
     Dates: start: 20041013, end: 20041116
  13. CIPROBAY (CIPROFLOXACIN HYDROCHLORIDE) [Suspect]
     Active Substance: CIPROFLOXACIN HYDROCHLORIDE
     Indication: CYSTITIS
     Dosage: DAILY DOSE: 500 MG MILLIGRAM(S) EVERY DAY
     Route: 048
     Dates: start: 20041021, end: 20041023
  14. IMESON [Suspect]
     Active Substance: NITRAZEPAM
     Dosage: DAILY DOSE: 1 DF DOSAGE FORM EVERY DAY
     Route: 048
     Dates: start: 20041102, end: 20041102
  15. SODIUM CHLORIDE. [Suspect]
     Active Substance: SODIUM CHLORIDE
     Dosage: UNK ML, UNK
     Route: 042
     Dates: start: 20041021, end: 20041101
  16. UREA. [Suspect]
     Active Substance: UREA
     Indication: PRURITUS
     Dosage: DAILY DOSE: 2 DF DOSAGE FORM EVERY DAY
     Route: 061
     Dates: start: 20041107, end: 20041116
  17. FENISTIL [Suspect]
     Active Substance: DIMETHINDENE
     Dosage: DAILY DOSE: 60 GTT DROP(S) EVERY DAY
     Dates: end: 200411
  18. DECORTIN H [Suspect]
     Active Substance: PREDNISOLONE
     Dosage: DAILY DOSE: 20 MG MILLIGRAM(S) EVERY DAY
     Route: 048
     Dates: start: 20041113, end: 20041114
  19. SOLU-DECORTIN-H [Suspect]
     Active Substance: PREDNISOLONE SODIUM SUCCINATE
     Indication: RASH
     Dosage: DAILY DOSE: 1 DF DOSAGE FORM EVERY DAY
     Route: 042
     Dates: start: 20041117, end: 20041118
  20. SOLVAY BALDRIAN DISPERT [Suspect]
     Active Substance: VALERIAN
     Indication: RESTLESSNESS
     Dosage: DAILY DOSE: 10 GTT DROP(S) EVERY DAY
     Route: 048
     Dates: start: 20041021, end: 20041021
  21. IMESON [Suspect]
     Active Substance: NITRAZEPAM
     Dosage: DAILY DOSE: 1 DF DOSAGE FORM EVERY DAY
     Route: 048
     Dates: start: 20041108, end: 20041109
  22. MUCOSOLVAN [Suspect]
     Active Substance: AMBROXOL HYDROCHLORIDE
     Dosage: DAILY DOSE: 3 DF DOSAGE FORM EVERY DAY
     Dates: start: 20041023, end: 20041110
  23. VANCOMYCIN [Suspect]
     Active Substance: VANCOMYCIN
     Indication: SEPSIS
     Dosage: UNK
     Route: 042
     Dates: start: 20041028, end: 20041029
  24. RIFAMPIN. [Suspect]
     Active Substance: RIFAMPIN
     Indication: SEPSIS
     Dosage: DAILY DOSE: 600 MG MILLIGRAM(S) EVERY DAY
     Route: 048
     Dates: start: 20041104, end: 20041112
  25. POTASSIUM CHLORIDE (+) SODIUM CHLORIDE [Suspect]
     Active Substance: POTASSIUM CHLORIDE\SODIUM CHLORIDE
     Indication: DIALYSIS
     Dosage: 20 MMOL/DAY
     Route: 042
     Dates: start: 20041109, end: 20041110
  26. TILIDIN [Suspect]
     Active Substance: NALOXONE HYDROCHLORIDE\TILIDINE HYDROCHLORIDE
     Indication: PAIN
     Dosage: UNK GTT DROPS
     Route: 048
     Dates: start: 20041020, end: 20041020
  27. BAYOTENSIN [Suspect]
     Active Substance: NITRENDIPINE
     Indication: HYPERTENSION
     Dosage: DAILY DOSE: 1 DF DOSAGE FORM EVERY DAY
     Route: 048
     Dates: start: 20041023, end: 20041023
  28. VANCOMYCIN [Suspect]
     Active Substance: VANCOMYCIN
     Dosage: UNK
     Route: 042
     Dates: start: 20041112, end: 20041112
  29. VANCOMYCIN [Suspect]
     Active Substance: VANCOMYCIN
     Dosage: UNK
     Route: 042
     Dates: start: 20041115, end: 20041116
  30. FENISTIL [Suspect]
     Active Substance: DIMETHINDENE
     Indication: PRURITUS
     Dosage: DAILY DOSE: 40 GTT DROP(S) EVERY DAY
     Route: 048
     Dates: start: 20041109
  31. LOPERAMIDE [Suspect]
     Active Substance: LOPERAMIDE
     Indication: DIARRHOEA
     Dosage: DAILY DOSE: 2 DF DOSAGE FORM EVERY DAY
     Route: 048
     Dates: start: 20041114, end: 20041114
  32. NUTRICIA RENILON [Suspect]
     Active Substance: AMINO ACIDS
     Indication: DEPRESSION
     Dosage: DAILY DOSE: 3 DF DOSAGE FORM EVERY DAY
     Route: 048
     Dates: start: 20041103, end: 20041116
  33. TAVEGIL [Suspect]
     Active Substance: CLEMASTINE FUMARATE
     Indication: PRURITUS
     Dosage: DAILY DOSE: 2 DF DOSAGE FORM EVERY DAY
     Route: 048
     Dates: start: 200410, end: 20041105
  34. IMESON [Suspect]
     Active Substance: NITRAZEPAM
     Indication: RESTLESSNESS
     Dosage: DAILY DOSE: 1 DF DOSAGE FORM EVERY DAY
     Route: 048
     Dates: start: 20041021, end: 20041022
  35. IMESON [Suspect]
     Active Substance: NITRAZEPAM
     Dosage: DAILY DOSE: 1 DF DOSAGE FORM EVERY DAY
     Route: 048
     Dates: start: 20041028, end: 20041030
  36. NAC [Suspect]
     Active Substance: ACETYLCYSTEINE
     Dosage: DAILY DOSE: 3 DF DOSAGE FORM EVERY DAY
     Route: 048
     Dates: start: 20041023, end: 20041105
  37. CIPROBAY (CIPROFLOXACIN HYDROCHLORIDE) [Suspect]
     Active Substance: CIPROFLOXACIN HYDROCHLORIDE
     Indication: CYSTITIS
     Dosage: DAILY DOSE: 500 MG MILLIGRAM(S) EVERY DAY
     Route: 048
     Dates: start: 20041017, end: 20041023
  38. NOVALGIN (DIPYRONE) [Suspect]
     Active Substance: DIPYRONE
     Indication: PAIN
     Dosage: DAILY DOSE: 20 GTT DROP(S) EVERY DAY
     Route: 048
     Dates: start: 20041023, end: 20041023
  39. DIAZEPAM. [Suspect]
     Active Substance: DIAZEPAM
     Indication: RESTLESSNESS
     Dosage: 5 MILLIGRAM
     Route: 042
     Dates: start: 20041027, end: 20041027
  40. TURIXIN [Suspect]
     Active Substance: MUPIROCIN CALCIUM
     Indication: WOUND INFECTION STAPHYLOCOCCAL
     Dosage: DAILY DOSE: 3 DF DOSAGE FORM EVERY DAY
     Route: 045
     Dates: start: 20041028, end: 20041105
  41. LOPERAMIDE [Suspect]
     Active Substance: LOPERAMIDE
     Dosage: DAILY DOSE: 2 DF DOSAGE FORM EVERY DAY
     Route: 048
     Dates: start: 20041116, end: 20041118
  42. HEPARIN SODIUM. [Suspect]
     Active Substance: HEPARIN SODIUM
     Indication: THROMBOSIS PROPHYLAXIS
     Dosage: 2000 IU
     Route: 042
     Dates: start: 20041115, end: 20041118
  43. LIPOFUNDIN [Suspect]
     Active Substance: EGG PHOSPHOLIPIDS\GLYCERIN\SOYBEAN OIL
     Indication: PARENTERAL NUTRITION
     Dosage: 500 ML, UNK
     Route: 042
     Dates: start: 20041118, end: 20071118
  44. ZIENAM 500 [Suspect]
     Active Substance: CILASTATIN SODIUM\IMIPENEM
     Indication: SEPSIS
     Dosage: DAILY DOSE: 1500 MG MILLIGRAM(S) EVERY DAY
     Route: 042
     Dates: start: 20041023, end: 20041104
  45. TILIDIN [Suspect]
     Active Substance: NALOXONE HYDROCHLORIDE\TILIDINE HYDROCHLORIDE
     Dosage: 0-0-0-20
     Route: 048
     Dates: start: 20041021, end: 20041021
  46. TILIDIN [Suspect]
     Active Substance: NALOXONE HYDROCHLORIDE\TILIDINE HYDROCHLORIDE
     Dosage: DAILY DOSE: 10 GTT DROP(S) EVERY DAY
     Route: 048
     Dates: start: 20041025, end: 20041025
  47. SODIUM CHLORIDE. [Suspect]
     Active Substance: SODIUM CHLORIDE
     Indication: HYPOVOLAEMIA
     Dosage: UNK MILLIGRAM
     Route: 042
     Dates: start: 20041018, end: 20041101
  48. TRAMAL [Suspect]
     Active Substance: TRAMADOL
     Indication: PAIN
     Dosage: DAILY DOSE: 20 GTT DROP(S) EVERY DAY
     Route: 048
     Dates: start: 20041022, end: 20041022
  49. TEMGESIC [Suspect]
     Active Substance: BUPRENORPHINE HYDROCHLORIDE
     Indication: PAIN
     Dosage: DAILY DOSE: 12 DF DOSAGE FORM EVERY DAY
     Route: 058
     Dates: start: 20041024, end: 20041024
  50. VANCOMYCIN [Suspect]
     Active Substance: VANCOMYCIN
     Dosage: UNK
     Route: 042
     Dates: start: 20041101, end: 20041102
  51. PARENTERAL NUTRITION (UNSPECIFIED) [Suspect]
     Active Substance: AMINO ACIDS\DEXTROSE\ELECTROLYTES NOS
     Indication: PARENTERAL NUTRITION
     Dosage: 500 MILLILITER, UNK
     Route: 042
     Dates: start: 20041118, end: 20041118

REACTIONS (11)
  - Pruritus [Fatal]
  - Toxic epidermal necrolysis [Fatal]
  - Rash papular [Fatal]
  - Oral mucosa erosion [Fatal]
  - Pyrexia [Fatal]
  - Blister [Fatal]
  - Pruritus [Fatal]
  - Nikolsky^s sign [Fatal]
  - Genital erosion [Fatal]
  - Conjunctivitis [Fatal]
  - Lip erosion [Fatal]

NARRATIVE: CASE EVENT DATE: 20041109
